FAERS Safety Report 8673869 (Version 4)
Quarter: 2012Q4

REPORT INFORMATION
  Report Type: 
  Country: US (occurrence: US)
  Receive Date: 20120719
  Receipt Date: 20121221
  Transmission Date: 20130627
  Serious: Yes (Hospitalization)
  Sender: FDA-Public Use
  Company Number: US-GILEAD-2012-0058109

PATIENT
  Sex: Female

DRUGS (6)
  1. LETAIRIS [Suspect]
     Indication: PULMONARY ARTERIAL HYPERTENSION
     Dosage: 5 mg, UNK
     Route: 048
     Dates: start: 20120705
  2. LETAIRIS [Suspect]
     Indication: SLEEP APNOEA SYNDROME
  3. LETAIRIS [Suspect]
     Indication: DIASTOLIC DYSFUNCTION
  4. TYVASO [Suspect]
     Indication: PULMONARY ARTERIAL HYPERTENSION
     Dosage: 6 mg, UNK
     Dates: start: 20120305
  5. ADCIRCA [Concomitant]
  6. ASPIRIN [Concomitant]

REACTIONS (4)
  - Pulmonary oedema [Unknown]
  - Compression fracture [Unknown]
  - Back disorder [Unknown]
  - Oedema peripheral [Unknown]
